FAERS Safety Report 5818743-1 (Version None)
Quarter: 2008Q3

REPORT INFORMATION
  Report Type: 
  Country: None (occurrence: None)
  Receive Date: 20080717
  Receipt Date: 20080717
  Transmission Date: 20090109
  Serious: Yes (Hospitalization)
  Sender: FDA-Public Use
  Company Number: None

PATIENT
  Sex: Male
  Weight: 18.4 kg

DRUGS (4)
  1. DOXORUBICIN HCL [Suspect]
     Dosage: 37.5 MG
  2. METHOTREXATE [Suspect]
     Dosage: 12 MG
  3. VINCRISTINE SULFATE [Suspect]
     Dosage: 2.26 MG
  4. DEXAMETHASONE [Suspect]
     Dosage: 56 MG

REACTIONS (11)
  - ABDOMINAL PAIN [None]
  - BLOOD POTASSIUM DECREASED [None]
  - CYANOSIS [None]
  - FEBRILE NEUTROPENIA [None]
  - HAEMOGLOBIN DECREASED [None]
  - HALLUCINATION [None]
  - LUNG INFILTRATION [None]
  - NAUSEA [None]
  - TACHYCARDIA [None]
  - TACHYPNOEA [None]
  - WHITE BLOOD CELL COUNT DECREASED [None]
